FAERS Safety Report 23144519 (Version 2)
Quarter: 2024Q1

REPORT INFORMATION
  Report Type: Spontaneous
  Country: US (occurrence: US)
  Receive Date: 20231103
  Receipt Date: 20240213
  Transmission Date: 20240410
  Serious: Yes (Other)
  Sender: FDA-Public Use
  Company Number: US-SUN PHARMACEUTICAL INDUSTRIES LTD-2023R1-415855

PATIENT
  Age: 62 Year
  Sex: Male

DRUGS (3)
  1. NOREPINEPHRINE [Suspect]
     Active Substance: NOREPINEPHRINE
     Indication: Shock haemorrhagic
     Dosage: 25 MICROGRAM/MIN.
     Route: 065
  2. PHENYLEPHRINE [Suspect]
     Active Substance: PHENYLEPHRINE HYDROCHLORIDE
     Indication: Shock haemorrhagic
     Dosage: 300 MICROGRAM/MIN
     Route: 065
  3. VASOPRESSIN [Suspect]
     Active Substance: VASOPRESSIN
     Indication: Shock haemorrhagic
     Dosage: 0.03 UNITS/MIN
     Route: 065

REACTIONS (2)
  - Extremity necrosis [Unknown]
  - Necrosis ischaemic [Unknown]
